FAERS Safety Report 5802254-3 (Version None)
Quarter: 2008Q3

REPORT INFORMATION
  Report Type: 
  Country: None (occurrence: None)
  Receive Date: 20080702
  Receipt Date: 20080612
  Transmission Date: 20090109
  Serious: Yes (Death, Life-Threatening, Other)
  Sender: FDA-Public Use
  Company Number: 2008US001246

PATIENT
  Age: 9 Year
  Sex: Female

DRUGS (25)
  1. AMBISOME [Suspect]
     Indication: PYELONEPHRITIS FUNGAL
     Dosage: 49.2 MG, UID/QD, PARENTERAL
     Route: 051
     Dates: start: 20080409, end: 20080422
  2. PROGRAF [Suspect]
     Indication: GRAFT VERSUS HOST DISEASE
     Dosage: 0.1 MG, PARENTERAL
     Route: 051
     Dates: end: 20080427
  3. FOSCAVIR [Suspect]
     Indication: CYTOMEGALOVIRUS INFECTION
     Dosage: PARENTERAL
     Route: 051
     Dates: start: 20080415, end: 20080422
  4. NEUTROGIN(LENOGRASTIM) [Suspect]
     Indication: NEUTROPENIA
     Dosage: 100 UG, UID/QD, IV NOS
     Route: 042
     Dates: start: 20080415, end: 20080426
  5. TARGOCID [Suspect]
     Indication: INFECTION
     Dosage: PARENTERAL
     Route: 051
     Dates: start: 20080420, end: 20080425
  6. ANTIVIRALS FOR SYSTEMIC USE() [Suspect]
     Indication: VIRAL INFECTION
     Dosage: IV NOS
     Route: 042
     Dates: start: 20080423, end: 20080423
  7. VFEND [Concomitant]
  8. POTASSIUM CHLORIDE [Concomitant]
  9. SOLU-MEDROL [Concomitant]
  10. ALPROSTADIL [Concomitant]
  11. NICARDIPINE HYDROCHLORIDE [Concomitant]
  12. OMEPRAL [Concomitant]
  13. CAPILLARY STABILIZING AGENTS [Concomitant]
  14. MORPHINE [Concomitant]
  15. DOPAMINE HYDROCHLORIDE [Concomitant]
  16. FIRSTCIN (CEFOZOPRAN HYDROCHLORIDE) [Concomitant]
  17. FULCALIQ 2 [Concomitant]
  18. ELEMENMIC (MINERALS NOS) [Concomitant]
  19. NOVO HEPARIN CALCIUM (HEPARIN CALCIUM) [Concomitant]
  20. SODIUM CHLORIDE 0.9% [Concomitant]
  21. URSO 250 [Concomitant]
  22. SULFAMETHOXAZOLE AND TRIMETHOPRIM [Concomitant]
  23. AMOBAN (ZOPICLONE) [Concomitant]
  24. ALBUMIN (HUMAN) [Concomitant]
  25. ATARAX [Concomitant]

REACTIONS (11)
  - BLOOD BILIRUBIN INCREASED [None]
  - BLOOD POTASSIUM DECREASED [None]
  - CARDIAC ARREST [None]
  - HAEMOGLOBIN DECREASED [None]
  - NEUROBLASTOMA RECURRENT [None]
  - OXYGEN SATURATION DECREASED [None]
  - PLATELET COUNT DECREASED [None]
  - PLEURAL EFFUSION [None]
  - PULMONARY OEDEMA [None]
  - RENAL FAILURE [None]
  - RESPIRATORY FAILURE [None]
